FAERS Safety Report 10638307 (Version 1)
Quarter: 2014Q4

REPORT INFORMATION
  Report Type: Spontaneous
  Country: PL (occurrence: PL)
  Receive Date: 20141208
  Receipt Date: 20141208
  Transmission Date: 20150529
  Serious: Yes (Death, Life-Threatening, Hospitalization)
  Sender: FDA-Public Use
  Company Number: PL-B.I. PHARMACEUTICALS,INC./RIDGEFIELD-2014-BI-58976PN

PATIENT
  Age: 72 Year
  Sex: Male

DRUGS (2)
  1. PRADAXA [Suspect]
     Active Substance: DABIGATRAN ETEXILATE MESYLATE
     Indication: ATRIAL FIBRILLATION
     Dosage: 220 MG
     Route: 048
  2. FRAXIPARINUM [Concomitant]
     Indication: LEG AMPUTATION
     Route: 058

REACTIONS (5)
  - Haemorrhagic diathesis [Unknown]
  - Rectal haemorrhage [Unknown]
  - Haematuria [Unknown]
  - Shock haemorrhagic [Fatal]
  - Haemoptysis [Unknown]
